FAERS Safety Report 5783139-8 (Version None)
Quarter: 2008Q2

REPORT INFORMATION
  Report Type: 
  Country: None (occurrence: None)
  Receive Date: 20080619
  Receipt Date: 20080619
  Transmission Date: 20081010
  Serious: Yes (Hospitalization)
  Sender: FDA-Public Use
  Company Number: None

PATIENT
  Sex: Male
  Weight: 24.5 kg

DRUGS (7)
  1. CYCLOPHOSPHAMIDE [Suspect]
     Dosage: 2880 MG
     Dates: end: 20080501
  2. CYTARABINE [Suspect]
     Dosage: 90 MG
     Dates: end: 20080502
  3. DOXORUBICIN HYDROCHLORIDE [Suspect]
     Dosage: 58 MG
     Dates: end: 20080428
  4. METHOTREXATE [Suspect]
     Dosage: 7700 MG
     Dates: end: 20080427
  5. METHYLPREDNISOLONE [Suspect]
     Dosage: 268 MG
     Dates: end: 20080502
  6. RITUXIMAB (MOAB C2B8 ANTI CD20, CHIMERIC) [Suspect]
     Dosage: 720 MG
     Dates: end: 20080425
  7. VINCRISTINE SULFATE [Suspect]
     Dosage: 1.9 MG
     Dates: end: 20080425

REACTIONS (4)
  - CAECITIS [None]
  - COLITIS [None]
  - DISEASE RECURRENCE [None]
  - STOMATITIS [None]
